FAERS Safety Report 14554222 (Version 1)
Quarter: 2018Q1

REPORT INFORMATION
  Report Type: Spontaneous
  Country: US (occurrence: US)
  Receive Date: 20180220
  Receipt Date: 20180220
  Transmission Date: 20180509
  Serious: No
  Sender: FDA-Public Use
  Company Number: US-ROMARKLABS-2017-US-000150

PATIENT
  Age: 40 Year
  Sex: Female

DRUGS (5)
  1. RECTAL OZONE THERAPY [Suspect]
     Active Substance: OZONE
     Dosage: 1 SESSION OF THERAPY
     Route: 054
     Dates: start: 20171121, end: 20171121
  2. ALINIA [Suspect]
     Active Substance: NITAZOXANIDE
     Indication: PARASITIC GASTROENTERITIS
     Dosage: 2 TABLETS TWICE DAILY
     Route: 048
     Dates: start: 20171117, end: 20171126
  3. VITAMIN B12 [Suspect]
     Active Substance: CYANOCOBALAMIN
     Indication: PRODUCT USED FOR UNKNOWN INDICATION
     Dosage: ONE-TIME INJECTION
     Route: 030
     Dates: start: 20171125, end: 20171125
  4. VALACYCLOVIR [Concomitant]
     Active Substance: VALACYCLOVIR HYDROCHLORIDE
     Indication: HUMAN HERPESVIRUS 6 INFECTION
     Route: 048
  5. UNSPECIFIED THYROID MEDICATION [Concomitant]
     Active Substance: UNSPECIFIED INGREDIENT
     Indication: HYPOTHYROIDISM
     Route: 048

REACTIONS (3)
  - Abdominal pain [Unknown]
  - Diarrhoea [Unknown]
  - Faeces discoloured [Recovered/Resolved]

NARRATIVE: CASE EVENT DATE: 20171125
